FAERS Safety Report 6651818-6 (Version None)
Quarter: 2010Q1

REPORT INFORMATION
  Report Type: 
  Country: None (occurrence: None)
  Receive Date: 20100325
  Receipt Date: 20100315
  Transmission Date: 20100710
  Serious: Yes (Life-Threatening, Other)
  Sender: FDA-Public Use
  Company Number: JP-PFIZER INC-2010005159

PATIENT
  Age: 47 Year
  Sex: Female
  Weight: 42.3 kg

DRUGS (9)
  1. SUNITINIB MALATE [Suspect]
     Indication: PHAEOCHROMOCYTOMA MALIGNANT
     Dosage: 50 MG, 1X/DAY
     Route: 048
     Dates: start: 20090918
  2. DOXAZOSIN MESYLATE [Concomitant]
     Route: 048
     Dates: start: 20090919
  3. HIRUDOID [Concomitant]
     Route: 062
  4. PROCHLORPERAZINE [Concomitant]
     Route: 048
  5. MS CONTIN [Concomitant]
     Route: 048
  6. MAGNESIUM OXIDE [Concomitant]
     Route: 048
  7. PRIMPERAN INJ [Concomitant]
     Route: 048
  8. RHYTHMY [Concomitant]
     Route: 048
  9. PAXIL [Concomitant]
     Route: 048

REACTIONS (4)
  - ANAEMIA [None]
  - DECREASED APPETITE [None]
  - HYPERTENSION [None]
  - MALAISE [None]
